FAERS Safety Report 9608385 (Version 2)
Quarter: 2013Q4

REPORT INFORMATION
  Report Type: Spontaneous
  Country: AU (occurrence: AU)
  Receive Date: 20131009
  Receipt Date: 20131028
  Transmission Date: 20140711
  Serious: Yes (Hospitalization, Other)
  Sender: FDA-Public Use
  Company Number: PHHY2013AU110697

PATIENT
  Age: 70 Year
  Sex: Male

DRUGS (4)
  1. OCTREOTIDE [Suspect]
     Indication: PANCREATIC NEUROENDOCRINE TUMOUR
     Dosage: 60 MG, UNK
     Dates: start: 2003
  2. OCTREOTIDE [Suspect]
     Dosage: UNK UKN, UNK
  3. INTERFERON [Suspect]
     Dosage: UNK UKN, UNK
     Dates: start: 2003, end: 2013
  4. 5 FLUORO URACIL [Suspect]
     Dosage: UNK UKN, UNK

REACTIONS (11)
  - Metastases to peritoneum [Recovering/Resolving]
  - Small intestinal obstruction [Recovered/Resolved]
  - Pneumonitis [Unknown]
  - Neuropathy peripheral [Unknown]
  - Mucosal inflammation [Unknown]
  - Hand-foot-genital syndrome [Unknown]
  - Renal impairment [Unknown]
  - Malignant neoplasm progression [Unknown]
  - Flushing [Unknown]
  - Diarrhoea [Unknown]
  - Abdominal mass [Unknown]
